FAERS Safety Report 7489028-5 (Version None)
Quarter: 2011Q2

REPORT INFORMATION
  Report Type: 
  Country: None (occurrence: None)
  Receive Date: 20110518
  Receipt Date: 20110512
  Transmission Date: 20111010
  Serious: Yes (Hospitalization)
  Sender: FDA-Public Use
  Company Number: US-TEVA-281389USA

PATIENT
  Age: 29 Year
  Sex: Female

DRUGS (1)
  1. NORETHIDRONE [Suspect]
     Indication: ENDOMETRIOSIS

REACTIONS (3)
  - TACHYCARDIA [None]
  - HYPERTENSION [None]
  - OEDEMA [None]
